FAERS Safety Report 7584034-4 (Version None)
Quarter: 2011Q2

REPORT INFORMATION
  Report Type: 
  Country: None (occurrence: None)
  Receive Date: 20110630
  Receipt Date: 20110621
  Transmission Date: 20111010
  Serious: Yes (Hospitalization)
  Sender: FDA-Public Use
  Company Number: GB-JNJFOC-20110107110

PATIENT
  Sex: Female
  Weight: 85 kg

DRUGS (5)
  1. METHOTREXATE [Concomitant]
     Route: 048
     Dates: start: 20030915
  2. FOLIC ACID [Concomitant]
  3. CALCICHEW [Concomitant]
  4. REMICADE [Suspect]
     Indication: RHEUMATOID ARTHRITIS
     Route: 042
     Dates: start: 20021215
  5. ACETAMINOPHEN AND CODEINE PHOSPHATE [Concomitant]

REACTIONS (6)
  - CYSTITIS [None]
  - PSORIASIS [None]
  - SKIN INFECTION [None]
  - URINARY TRACT INFECTION [None]
  - RHEUMATOID ARTHRITIS [None]
  - NEPHROLITHIASIS [None]
